FAERS Safety Report 4623602-6 (Version None)
Quarter: 2005Q2

REPORT INFORMATION
  Report Type: 
  Country: None (occurrence: None)
  Receive Date: 20050325
  Receipt Date: 20050118
  Transmission Date: 20051028
  Serious: No
  Sender: FDA-Public Use
  Company Number: USA041080444

PATIENT
  Age: 88 Year
  Sex: Female

DRUGS (1)
  1. FORTEO [Suspect]
     Indication: ARTHROPATHY
     Dosage: 20 UG/ 1 DAY
     Dates: start: 20040101

REACTIONS (4)
  - HEADACHE [None]
  - HEART RATE INCREASED [None]
  - INCONTINENCE [None]
  - VIRAL INFECTION [None]
